FAERS Safety Report 4773584-1 (Version None)
Quarter: 2005Q3

REPORT INFORMATION
  Report Type: 
  Country: None (occurrence: None)
  Receive Date: 20050920
  Receipt Date: 20050817
  Transmission Date: 20060218
  Serious: No
  Sender: FDA-Public Use
  Company Number: US-BRISTOL-MYERS SQUIBB COMPANY-13081435

PATIENT
  Age: 25 Year
  Sex: Female

DRUGS (1)
  1. BUSPAR [Suspect]
     Indication: ANXIETY
     Route: 048
     Dates: start: 20050801, end: 20050808

REACTIONS (2)
  - ABNORMAL DREAMS [None]
  - INSOMNIA [None]
